FAERS Safety Report 24317614 (Version 1)
Quarter: 2024Q3

REPORT INFORMATION
  Report Type: Spontaneous
  Country: US (occurrence: US)
  Receive Date: 20240913
  Receipt Date: 20240913
  Transmission Date: 20241017
  Serious: Yes (Hospitalization)
  Sender: Alora Pharma
  Company Number: US-TRIGEN LABORATORIES-2024ALO00440

PATIENT
  Age: 76 Year
  Sex: Female

DRUGS (5)
  1. NITROFURANTOIN [Suspect]
     Active Substance: NITROFURANTOIN
     Dosage: MACROCRYSTALS; 100 MG, 2X/DAY
     Route: 048
  2. APIXABAN [Concomitant]
     Active Substance: APIXABAN
  3. HYDROCHLOROTHIAZIDE [Concomitant]
     Active Substance: HYDROCHLOROTHIAZIDE
  4. IRBESARTAN [Concomitant]
     Active Substance: IRBESARTAN
  5. METFORMIN [Concomitant]
     Active Substance: METFORMIN HYDROCHLORIDE

REACTIONS (2)
  - Tubulointerstitial nephritis [Recovering/Resolving]
  - Crystal nephropathy [Recovering/Resolving]
